FAERS Safety Report 5116958-1 (Version None)
Quarter: 2006Q3

REPORT INFORMATION
  Report Type: 
  Country: None (occurrence: None)
  Receive Date: 20060925
  Receipt Date: 20060920
  Transmission Date: 20061208
  Serious: Yes (Other)
  Sender: FDA-Public Use
  Company Number: THQ2005A00958

PATIENT
  Age: 78 Year
  Sex: Male

DRUGS (2)
  1. LEUPRORELIN ACETATE DEPOT INJECTION (LEUPROLIDE ACETATE) (INJECTION) [Suspect]
     Indication: PROSTATIC ADENOMA
     Route: 058
     Dates: start: 20040517
  2. ANTICOAGULANT (ANTITHROMBOTIC AGENTS) [Concomitant]

REACTIONS (9)
  - ABSCESS [None]
  - GRANULOMA [None]
  - HYPERSENSITIVITY [None]
  - INFLAMMATION [None]
  - INJECTION SITE ABSCESS [None]
  - RASH ERYTHEMATOUS [None]
  - RASH PAPULAR [None]
  - REACTION TO DRUG EXCIPIENTS [None]
  - SUBCUTANEOUS NODULE [None]
